FAERS Safety Report 8606828-6 (Version None)
Quarter: 2012Q3

REPORT INFORMATION
  Report Type: 
  Country: None (occurrence: None)
  Receive Date: 20120820
  Receipt Date: 20120813
  Transmission Date: 20120928
  Serious: Yes (Hospitalization)
  Sender: FDA-Public Use
  Company Number: JP-ROCHE-1084805

PATIENT
  Sex: Male
  Weight: 57 kg

DRUGS (8)
  1. ALOGLIPTIN BENZOATE [Suspect]
     Indication: DIABETES MELLITUS
     Route: 048
     Dates: end: 20120629
  2. MOBIC [Concomitant]
     Route: 048
  3. RHEUMATREX [Suspect]
     Indication: RHEUMATOID ARTHRITIS
     Route: 048
     Dates: end: 20120629
  4. FAMOTIDINE [Concomitant]
     Route: 048
  5. ACTEMRA [Suspect]
     Indication: RHEUMATOID ARTHRITIS
     Route: 041
     Dates: start: 20101124
  6. MUCOSTA [Concomitant]
     Route: 048
  7. ALENDRONATE SODIUM [Concomitant]
     Route: 048
  8. ONEALFA [Concomitant]
     Route: 048

REACTIONS (1)
  - PNEUMATOSIS INTESTINALIS [None]
